FAERS Safety Report 7101809-6 (Version None)
Quarter: 2010Q4

REPORT INFORMATION
  Report Type: 
  Country: None (occurrence: None)
  Receive Date: 20101115
  Receipt Date: 20101101
  Transmission Date: 20110411
  Serious: Yes (Other)
  Sender: FDA-Public Use
  Company Number: PHFR2010IE04341

PATIENT
  Sex: Female
  Weight: 53 kg

DRUGS (11)
  1. CLOZARIL [Suspect]
     Indication: SCHIZOPHRENIA
     Dosage: 250 MG, UNK
     Route: 048
     Dates: start: 20100703, end: 20100716
  2. OLANZAPINE [Concomitant]
     Indication: SCHIZOPHRENIA
     Dosage: 20 MG, UNK
     Route: 048
     Dates: start: 20100820
  3. HALOPERIDOL [Concomitant]
     Indication: SCHIZOPHRENIA
     Dosage: 15 MG, UNK
     Route: 048
     Dates: start: 20100720
  4. GLUCOPHAGE [Concomitant]
     Indication: TYPE 2 DIABETES MELLITUS
     Dosage: 1000 MG, UNK
     Route: 048
  5. LIPITOR [Concomitant]
     Indication: DYSLIPIDAEMIA
     Dosage: 10 MG, UNK
     Route: 048
  6. DICLOFENAC SODIUM [Concomitant]
     Indication: ARTHRITIS
     Dosage: 150 MG, PRN
     Route: 048
     Dates: start: 20100831
  7. SENNA [Concomitant]
     Indication: CONSTIPATION
     Dosage: UNK, PRN
     Route: 048
  8. NULYTELY [Concomitant]
     Indication: CONSTIPATION
     Dosage: UNK, PRN
     Route: 048
  9. LACTULOSE [Concomitant]
     Indication: CONSTIPATION
     Dosage: UNK, PRN
     Route: 048
  10. PARACETAMOL [Concomitant]
     Dosage: 1 G, PRN EVERY 6 HOUR
  11. AUGMENTIN '125' [Concomitant]
     Dosage: 625 MG, BID
     Route: 048
     Dates: start: 20100727, end: 20100802

REACTIONS (9)
  - BLOOD ALBUMIN INCREASED [None]
  - BLOOD ALKALINE PHOSPHATASE INCREASED [None]
  - COUGH [None]
  - HEART RATE INCREASED [None]
  - PLATELET COUNT INCREASED [None]
  - PYREXIA [None]
  - RED BLOOD CELL SEDIMENTATION RATE INCREASED [None]
  - TACHYCARDIA [None]
  - THROMBOCYTOSIS [None]
